FAERS Safety Report 24007718 (Version 2)
Quarter: 2024Q3

REPORT INFORMATION
  Report Type: Spontaneous
  Country: US (occurrence: US)
  Receive Date: 20240625
  Receipt Date: 20240702
  Transmission Date: 20241017
  Serious: No
  Sender: BIOGEN
  Company Number: US-BIOGEN-2024BI01270319

PATIENT
  Sex: Male

DRUGS (1)
  1. QALSODY [Suspect]
     Active Substance: TOFERSEN
     Indication: Amyotrophic lateral sclerosis
     Route: 050

REACTIONS (4)
  - Procedural pain [Recovered/Resolved]
  - Procedural complication [Unknown]
  - Post lumbar puncture syndrome [Unknown]
  - Neurological procedural complication [Unknown]

NARRATIVE: CASE EVENT DATE: 20240607
